FAERS Safety Report 15122202 (Version 2)
Quarter: 2018Q4

REPORT INFORMATION
  Report Type: Spontaneous
  Country: PY (occurrence: PY)
  Receive Date: 20180709
  Receipt Date: 20181128
  Transmission Date: 20190204
  Serious: Yes (Hospitalization)
  Sender: FDA-Public Use
  Company Number: PY-SAKK-2018SA167978AA

PATIENT
  Age: 34 Year
  Sex: Female

DRUGS (1)
  1. CEREZYME [Suspect]
     Active Substance: IMIGLUCERASE
     Indication: GAUCHER^S DISEASE
     Dosage: 60 MG/KG, QOW
     Route: 041
     Dates: start: 201406

REACTIONS (5)
  - Iron deficiency anaemia [Recovering/Resolving]
  - Ovarian cyst [Recovering/Resolving]
  - Abdominal pain [Recovering/Resolving]
  - Pelvic inflammatory disease [Recovering/Resolving]
  - Abdominal pain lower [Recovering/Resolving]

NARRATIVE: CASE EVENT DATE: 2018
